FAERS Safety Report 5921474-0 (Version None)
Quarter: 2008Q4

REPORT INFORMATION
  Report Type: 
  Country: None (occurrence: None)
  Receive Date: 20081016
  Receipt Date: 20081016
  Transmission Date: 20090506
  Serious: Yes (Other)
  Sender: FDA-Public Use
  Company Number: None

PATIENT
  Age: 56 Year
  Sex: Female
  Weight: 96.6162 kg

DRUGS (1)
  1. PREDNISONE [Suspect]
     Indication: ASTHMA
     Dosage: 60MG 4 503 TO 3  30-2 20-2 10-1 10-1
     Dates: start: 20080912

REACTIONS (10)
  - BURNING SENSATION [None]
  - DYSPNOEA [None]
  - HYPERHIDROSIS [None]
  - HYPERSOMNIA [None]
  - HYPERTENSION [None]
  - LUNG DISORDER [None]
  - NAIL DISCOLOURATION [None]
  - PARAESTHESIA ORAL [None]
  - PRODUCTIVE COUGH [None]
  - YELLOW SKIN [None]
